FAERS Safety Report 8286353-5 (Version None)
Quarter: 2012Q1

REPORT INFORMATION
  Report Type: 
  Country: None (occurrence: None)
  Receive Date: 20120327
  Receipt Date: 20120321
  Transmission Date: 20120608
  Serious: Yes (Death, Hospitalization)
  Sender: FDA-Public Use
  Company Number: 2012031148

PATIENT
  Age: 79 Year
  Sex: Male

DRUGS (11)
  1. PANTOPRAZOLE [Concomitant]
  2. PRIVIGEN [Suspect]
     Dosage: 10 G QD INTRAVENOUS (NOT OTHERWISE SPECIFIED)
     Route: 042
     Dates: start: 20110214, end: 20110214
  3. ALLOPURINOL [Concomitant]
  4. PRIVIGEN [Suspect]
     Dosage: 10 G QD INTRAVENOUS (NOT OTHERWISE SPECIFIED)
     Route: 042
     Dates: start: 20101021, end: 20101021
  5. PRIVIGEN [Suspect]
     Dosage: 20 G QD INTRAVENOUS (NOT OTHERWISE SPECIFIED)
     Route: 042
     Dates: start: 20110214, end: 20110214
  6. RAMIPRIL [Concomitant]
  7. PRIVIGEN [Suspect]
     Indication: CHRONIC LYMPHOCYTIC LEUKAEMIA
     Dosage: 10 G QD INTRAVENOUS (NOT OTHERWISE SPECIFIED)
     Route: 042
     Dates: start: 20101021, end: 20101021
  8. PRIVIGEN [Suspect]
     Dosage: 10 G QD INTRAVENOUS (NOT OTHERWISE SPECIFIED)
     Route: 042
     Dates: start: 20101021, end: 20101021
  9. AMLODIPIN /00972401/ (AMLODIPINE) [Concomitant]
  10. PREDNISOLON /00016201/ (PREDNISOLONE) [Concomitant]
  11. BISOPROLOL FUMARATE [Concomitant]

REACTIONS (6)
  - CHILLS [None]
  - BLOOD PRESSURE DECREASED [None]
  - BLOOD PRESSURE INCREASED [None]
  - SEPSIS [None]
  - LUNG INFECTION [None]
  - INFUSION RELATED REACTION [None]
